FAERS Safety Report 8111408-5 (Version None)
Quarter: 2012Q1

REPORT INFORMATION
  Report Type: 
  Country: None (occurrence: None)
  Receive Date: 20120203
  Receipt Date: 20111116
  Transmission Date: 20120608
  Serious: No
  Sender: FDA-Public Use
  Company Number: US-GLAXOSMITHKLINE-A0953415A

PATIENT
  Age: 43 Year
  Sex: Female

DRUGS (5)
  1. LAMICTAL [Suspect]
     Indication: BIPOLAR DISORDER
     Route: 048
  2. LIPITOR [Concomitant]
  3. LITHIUM CARBONATE [Concomitant]
  4. BUSPIRONE HCL [Concomitant]
  5. LEVOXYL [Concomitant]

REACTIONS (1)
  - MEMORY IMPAIRMENT [None]
